FAERS Safety Report 4766914-8 (Version None)
Quarter: 2005Q3

REPORT INFORMATION
  Report Type: 
  Country: None (occurrence: None)
  Receive Date: 20050913
  Receipt Date: 20050818
  Transmission Date: 20060218
  Serious: Yes (Death, Hospitalization)
  Sender: FDA-Public Use
  Company Number: FR-BOEHRINGER INGELHEIM PHARMACEUTICALS, INC.-2005-FF-00580FF

PATIENT
  Age: 85 Year
  Sex: Male

DRUGS (10)
  1. JOSIR [Suspect]
     Indication: BENIGN PROSTATIC HYPERPLASIA
     Route: 048
     Dates: end: 20050725
  2. CORDARONE [Concomitant]
     Route: 048
     Dates: start: 20050316, end: 20050725
  3. PRAVASTATIN [Concomitant]
     Indication: HYPERCHOLESTEROLAEMIA
     Route: 048
     Dates: end: 20050725
  4. DEROXAT [Concomitant]
     Route: 048
     Dates: start: 20040101
  5. NEXIUM [Concomitant]
     Indication: GASTRODUODENAL ULCER
     Route: 048
     Dates: start: 20040101, end: 20050725
  6. CASODEX [Concomitant]
     Indication: PROSTATE CANCER METASTATIC
     Route: 048
     Dates: start: 20050316, end: 20050725
  7. PREVISCAN [Concomitant]
     Indication: ISCHAEMIC STROKE
     Route: 048
     Dates: start: 20041001
  8. PREVISCAN [Concomitant]
     Indication: PULMONARY EMBOLISM
  9. TARDYFERON [Concomitant]
     Route: 048
     Dates: start: 20050523
  10. ADANCOR [Concomitant]

REACTIONS (2)
  - ANGIONEUROTIC OEDEMA [None]
  - BRAIN OEDEMA [None]
